FAERS Safety Report 4782886-4 (Version None)
Quarter: 2005Q3

REPORT INFORMATION
  Report Type: 
  Country: None (occurrence: None)
  Receive Date: 20050914
  Receipt Date: 20050531
  Transmission Date: 20060218
  Serious: Yes (Death)
  Sender: FDA-Public Use
  Company Number: 163-20785-05050415

PATIENT
  Age: 59 Year
  Sex: Male

DRUGS (1)
  1. THALOMID [Suspect]
     Indication: METASTATIC MALIGNANT MELANOMA
     Dosage: 50 MG, DAILY, ORAL; 2 DOSES
     Route: 048

REACTIONS (3)
  - DEATH [None]
  - DISEASE PROGRESSION [None]
  - RENAL FAILURE ACUTE [None]
